FAERS Safety Report 7879637-3 (Version None)
Quarter: 2011Q4

REPORT INFORMATION
  Report Type: 
  Country: None (occurrence: None)
  Receive Date: 20111101
  Receipt Date: 20111026
  Transmission Date: 20120403
  Serious: Yes (Hospitalization)
  Sender: FDA-Public Use
  Company Number: US-GLAXOSMITHKLINE-A0951280A

PATIENT
  Age: 51 Year
  Sex: Male

DRUGS (2)
  1. ADVAIR DISKUS 100/50 [Suspect]
     Route: 065
     Dates: start: 20100804
  2. COREG [Suspect]
     Dosage: 6.25MG UNKNOWN
     Route: 065
     Dates: start: 20100804

REACTIONS (1)
  - STENT PLACEMENT [None]
